FAERS Safety Report 17780179 (Version 5)
Quarter: 2020Q2

REPORT INFORMATION
  Report Type: Report from Study
  Country: CH (occurrence: CH)
  Receive Date: 20200514
  Receipt Date: 20200608
  Transmission Date: 20200714
  Serious: Yes (Hospitalization)
  Sender: FDA-Public Use
  Company Number: CH-ROCHE-2594887

PATIENT
  Age: 73 Year
  Sex: Male

DRUGS (23)
  1. ATEZOLIZUMAB. [Suspect]
     Active Substance: ATEZOLIZUMAB
     Indication: MALIGNANT MELANOMA
     Dosage: ON 23/APR/2020,HE RECEIVED THE LAST DOSE OF THE INTRAVENOUS ATEZOLIZUMAB 840 MG PRIOR TO AE/SAE ONSE
     Route: 042
     Dates: start: 20200312
  2. CALCIUM CARBONATE;COLECALCIFEROL [Concomitant]
     Active Substance: CALCIUM CARBONATE\CHOLECALCIFEROL
     Indication: PROPHYLAXIS
     Route: 048
  3. DEXAMETHASONE. [Concomitant]
     Active Substance: DEXAMETHASONE
     Route: 048
     Dates: start: 20200302, end: 20200303
  4. TOREM [TORASEMIDE] [Concomitant]
     Active Substance: TORSEMIDE
     Indication: HYPERTENSION
     Route: 048
     Dates: start: 20200306
  5. BACTRIM [Concomitant]
     Active Substance: SULFAMETHOXAZOLE\TRIMETHOPRIM
     Indication: PROPHYLAXIS
     Route: 048
     Dates: start: 20200318, end: 20200324
  6. PANTOPRAZOLE [Concomitant]
     Active Substance: PANTOPRAZOLE
     Route: 048
  7. DEXAMETHASONE. [Concomitant]
     Active Substance: DEXAMETHASONE
     Route: 048
     Dates: start: 20200221, end: 20200224
  8. KEPPRA [Concomitant]
     Active Substance: LEVETIRACETAM
     Route: 048
     Dates: start: 20200306
  9. TOREM [TORASEMIDE] [Concomitant]
     Active Substance: TORSEMIDE
     Route: 048
     Dates: start: 20200507, end: 20200515
  10. DOXAZOSIN [Concomitant]
     Active Substance: DOXAZOSIN MESYLATE
     Route: 048
     Dates: start: 20200507, end: 20200514
  11. DEXAMETHASONE. [Concomitant]
     Active Substance: DEXAMETHASONE
     Route: 048
     Dates: start: 20200218, end: 20200220
  12. CIPROXIN [CIPROFLOXACIN] [Concomitant]
     Indication: URINARY TRACT INFECTION
     Route: 048
     Dates: start: 20200307, end: 20200316
  13. COBIMETINIB. [Suspect]
     Active Substance: COBIMETINIB
     Indication: MALIGNANT MELANOMA
     Dosage: ON 29/APR/2020,HE RECEIVED THE LAST DOSE OF THE INTRAVENOUS COBIMETINIB 60 MG PRIOR TO AE/SAE ONSET
     Route: 048
     Dates: start: 20200211
  14. DEXAMETHASONE. [Concomitant]
     Active Substance: DEXAMETHASONE
     Route: 048
     Dates: start: 20200215, end: 20200217
  15. ZOLEDRONATE [Concomitant]
     Active Substance: ZOLEDRONIC ACID
     Indication: METASTASES TO BONE
     Route: 042
     Dates: start: 20200228
  16. PIPERACILLIN/TAZOBACTAM [Concomitant]
     Active Substance: PIPERACILLIN SODIUM\TAZOBACTAM SODIUM
     Indication: URINARY TRACT INFECTION
     Route: 048
     Dates: start: 20200317, end: 20200318
  17. ZANIDIP [Concomitant]
     Active Substance: LERCANIDIPINE HYDROCHLORIDE
     Indication: HYPERTENSION
     Route: 048
     Dates: start: 20200507, end: 20200513
  18. VEMURAFENIB. [Suspect]
     Active Substance: VEMURAFENIB
     Indication: MALIGNANT MELANOMA
     Dosage: ON 30/APR/2020,HE RECEIVED THE LAST DOSE OF THE INTRAVENOUS COBIMETINIB 720 MG TWICE A DAY PRIOR TO
     Route: 048
     Dates: start: 20200211
  19. DEXAMETHASONE. [Concomitant]
     Active Substance: DEXAMETHASONE
     Indication: MUSCULAR WEAKNESS
     Route: 048
     Dates: start: 20200204, end: 20200214
  20. CONCOR [Concomitant]
     Active Substance: BISOPROLOL FUMARATE
     Indication: ATRIAL FLUTTER
     Route: 048
     Dates: start: 20200305
  21. DIOVAN [Concomitant]
     Active Substance: VALSARTAN
     Indication: HYPERTENSION
     Route: 048
     Dates: start: 20200302
  22. DEXAMETHASONE. [Concomitant]
     Active Substance: DEXAMETHASONE
     Route: 048
     Dates: start: 20200225, end: 20200301
  23. KEPPRA [Concomitant]
     Active Substance: LEVETIRACETAM
     Indication: PARTIAL SEIZURES
     Route: 048
     Dates: start: 20200302, end: 20200305

REACTIONS (1)
  - Acute kidney injury [Recovered/Resolved]

NARRATIVE: CASE EVENT DATE: 20200429
